FAERS Safety Report 8780954 (Version 1)
Quarter: 2012Q4

REPORT INFORMATION
  Report Type: 
  Country: US (occurrence: US)
  Receive Date: 20120913
  Receipt Date: 20120913
  Transmission Date: 20130627
  Serious: Yes (Hospitalization)
  Sender: FDA-Public Use
  Company Number: US-009507513-1209USA003034

PATIENT

DRUGS (12)
  1. ISENTRESS [Suspect]
     Route: 048
  2. REYATAZ [Suspect]
     Dosage: UNK mg, UNK
  3. INTELENCE [Suspect]
     Dosage: UNK
  4. CYMEVAN CAPSULES [Suspect]
  5. TRUVADA [Suspect]
  6. ABACAVIR [Suspect]
  7. RIFAMPIN [Suspect]
  8. PYRAZINAMIDE [Suspect]
  9. BACTRIM [Suspect]
  10. LOVENOX [Suspect]
  11. RIMIFON [Suspect]
  12. FOLIC ACID [Concomitant]

REACTIONS (6)
  - Angioedema [Unknown]
  - Blood creatinine increased [Unknown]
  - Drug reaction with eosinophilia and systemic symptoms [Unknown]
  - Lung disorder [Unknown]
  - Dyspepsia [Unknown]
  - Mycobacterium test positive [Unknown]
